FAERS Safety Report 7134728 (Version 2)
Quarter: 2012Q4

REPORT INFORMATION
  Report Type: 
  Country: KR (occurrence: KR)
  Receive Date: 20090929
  Receipt Date: 20120925
  Transmission Date: 20130627
  Serious: Yes (Death, Hospitalization)
  Sender: FDA-Public Use
  Company Number: KR-RANBAXY-2009RR-28121

PATIENT
  Age: 59 Year
  Sex: Female

DRUGS (10)
  1. CIPROFLOXACIN [Suspect]
     Indication: RENAL ABSCESS
     Dosage: 1000 mg per day
     Route: 048
  2. CIPROFLOXACIN [Suspect]
     Indication: RENAL ABSCESS
     Dosage: 400 mg per day
     Route: 042
     Dates: start: 20070113
  3. CIPROFLOXACIN [Suspect]
     Indication: RENAL ABSCESS
     Dosage: 1000 mg per day
     Route: 065
  4. LAMIVUDINE [Concomitant]
     Indication: HEPATITIS B
     Dosage: 100 mg daily
     Route: 065
  5. SPIRONOLACTONE [Concomitant]
     Indication: PRODUCT USED FOR UNKNOWN INDICATION
     Dosage: 200 mg daily
     Route: 065
  6. FUROSEMIDE [Concomitant]
     Indication: ASCITES
     Dosage: 20 mg daily
     Route: 065
  7. LACTULOSE [Concomitant]
     Indication: CONSTIPATION
     Dosage: 60 ml, UNK
     Route: 048
  8. METRONIDAZOLE [Concomitant]
     Indication: RENAL ABSCESS
     Dosage: UNK
     Route: 042
     Dates: start: 20070113
  9. METRONIDAZOLE [Concomitant]
     Indication: RENAL ABSCESS
     Dosage: 1500 mg per day
     Route: 065
  10. CEFOTAXIME [Concomitant]
     Indication: RENAL ABSCESS
     Route: 065

REACTIONS (1)
  - Ballismus [Recovered/Resolved]
